FAERS Safety Report 20016802 (Version 1)
Quarter: 2021Q4

REPORT INFORMATION
  Report Type: Spontaneous
  Country: US (occurrence: None)
  Receive Date: 20211104
  Receipt Date: 20211104
  Transmission Date: 20220303
  Serious: Yes (Death)
  Sender: FDA-Public Use
  Company Number: None

PATIENT
  Age: 61 Year
  Sex: Male

DRUGS (23)
  1. RITONAVIR [Suspect]
     Active Substance: RITONAVIR
     Dosage: FREQUENCY : DAILY;?
     Route: 048
     Dates: start: 20210305, end: 20211029
  2. PREZISTA [Suspect]
     Active Substance: DARUNAVIR ETHANOLATE
     Indication: HIV infection
     Dosage: FREQUENCY : DAILY;?
     Route: 048
     Dates: start: 20200305, end: 20211029
  3. FERROUS SULFATE [Concomitant]
     Active Substance: FERROUS SULFATE
  4. METFORMIN [Concomitant]
     Active Substance: METFORMIN HYDROCHLORIDE
  5. OYSTER SHELL CALCIUM WITH VITAMIN D [Concomitant]
     Active Substance: CALCIUM\CHOLECALCIFEROL
  6. PREGABALIN [Concomitant]
     Active Substance: PREGABALIN
  7. LAMSULOSIN [Concomitant]
  8. VITAMIN D [Concomitant]
     Active Substance: VITAMIN D NOS
  9. ASPIRIN [Concomitant]
     Active Substance: ASPIRIN
  10. ATORVASTATIN [Concomitant]
     Active Substance: ATORVASTATIN
  11. DULOXETINE [Concomitant]
     Active Substance: DULOXETINE
  12. HYDROXYZINE HYDROCHLORIDE [Concomitant]
     Active Substance: HYDROXYZINE HYDROCHLORIDE
  13. JARDIANCE [Concomitant]
     Active Substance: EMPAGLIFLOZIN
  14. LISINOPRIL [Concomitant]
     Active Substance: LISINOPRIL
  15. OMEPRAZOLE [Concomitant]
     Active Substance: OMEPRAZOLE
  16. PREZISTA [Concomitant]
     Active Substance: DARUNAVIR ETHANOLATE
  17. RITONAVIR [Concomitant]
     Active Substance: RITONAVIR
  18. TIVICAY [Concomitant]
     Active Substance: DOLUTEGRAVIR SODIUM
  19. TRUICITY [Concomitant]
  20. LANTUS [Concomitant]
     Active Substance: INSULIN GLARGINE
  21. DILTIAZEM [Concomitant]
     Active Substance: DILTIAZEM
  22. MUPIROCIN [Concomitant]
     Active Substance: MUPIROCIN
  23. SANTYL OINMENT [Concomitant]

REACTIONS (1)
  - Death [None]

NARRATIVE: CASE EVENT DATE: 20211029
